FAERS Safety Report 7450823-X (Version None)
Quarter: 2011Q2

REPORT INFORMATION
  Report Type: 
  Country: None (occurrence: None)
  Receive Date: 20110502
  Receipt Date: 20110302
  Transmission Date: 20111010
  Serious: Yes (Other)
  Sender: FDA-Public Use
  Company Number: US-BAYER-201039674NA

PATIENT
  Age: 22 Year
  Sex: Female

DRUGS (11)
  1. DOXYCYCLIN [DOXYCYCLINE] [Suspect]
  2. YAZ [Suspect]
  3. AMBIEN [Concomitant]
  4. LOESTRIN 1.5/30 [Concomitant]
     Indication: CONTRACEPTION
  5. ORTHO TRI-CYCLEN [Suspect]
  6. DIFLUCAN [Suspect]
  7. DARVOCET [Suspect]
  8. YAZ [Suspect]
     Indication: CONTRACEPTION
     Route: 048
     Dates: start: 20060101, end: 20100615
  9. NORDETTE-21 [Concomitant]
     Indication: CONTRACEPTION
     Dosage: UNK
     Dates: start: 20071016
  10. CYMBALTA [Concomitant]
  11. VALTREX [Concomitant]

REACTIONS (2)
  - CHOLECYSTITIS [None]
  - PAIN [None]
